FAERS Safety Report 18078722 (Version 1)
Quarter: 2020Q3

REPORT INFORMATION
  Report Type: Spontaneous
  Country: US (occurrence: US)
  Receive Date: 20200728
  Receipt Date: 20200728
  Transmission Date: 20201103
  Serious: Yes (Hospitalization, Other)
  Sender: FDA-Public Use
  Company Number: US-ACCORD-190369

PATIENT
  Age: 2 Year
  Sex: Male

DRUGS (2)
  1. MYCOPHENOLIC ACID. [Suspect]
     Active Substance: MYCOPHENOLIC ACID
     Indication: IMMUNOSUPPRESSION
  2. TACROLIMUS. [Suspect]
     Active Substance: TACROLIMUS
     Indication: IMMUNOSUPPRESSION

REACTIONS (8)
  - Aphthous ulcer [Recovered/Resolved]
  - Immune system disorder [Recovered/Resolved]
  - B-lymphocyte abnormalities [Recovered/Resolved]
  - Colitis [Recovered/Resolved]
  - Large intestinal ulcer [Recovered/Resolved]
  - T-lymphocyte count abnormal [Recovered/Resolved]
  - Rectal ulcer [Recovered/Resolved]
  - Oesophageal ulcer [Recovered/Resolved]
